FAERS Safety Report 4303415-5 (Version None)
Quarter: 2004Q1

REPORT INFORMATION
  Report Type: 
  Country: None (occurrence: None)
  Receive Date: 20040220
  Receipt Date: 20040210
  Transmission Date: 20041129
  Serious: Yes (Hospitalization, Other)
  Sender: FDA-Public Use
  Company Number: HQWYE670629JAN04

PATIENT
  Age: 41 Year
  Sex: Female

DRUGS (6)
  1. RAPAMUNE [Suspect]
     Indication: PROPHYLAXIS AGAINST TRANSPLANT REJECTION
     Dosage: 4 MG 1X PER 1 DAY, ORAL
     Route: 048
     Dates: start: 19990512
  2. PREDNISOLONE [Concomitant]
  3. PERINDOPRIL (PERINDOPRIL) [Concomitant]
  4. ATORVASTATIN CALCIUM [Concomitant]
  5. POTASSIUM CHLORIDE [Concomitant]
  6. OXAZEPAM [Concomitant]

REACTIONS (5)
  - ENDOMETRITIS [None]
  - HAEMOGLOBIN DECREASED [None]
  - MENORRHAGIA [None]
  - OVARIAN ADENOMA [None]
  - SALPINGITIS [None]
